FAERS Safety Report 7228884-2 (Version None)
Quarter: 2011Q1

REPORT INFORMATION
  Report Type: 
  Country: None (occurrence: None)
  Receive Date: 20110117
  Receipt Date: 20110112
  Transmission Date: 20110831
  Serious: Yes (Other)
  Sender: FDA-Public Use
  Company Number: US-AMGEN-USASP2010012883

PATIENT

DRUGS (10)
  1. NEULASTA [Suspect]
     Indication: NEUTROPENIA
     Dosage: 6 MG, UNK
     Route: 058
     Dates: start: 20101218
  2. CHEMOTHERAPEUTICS NOS [Concomitant]
  3. COMPAZINE [Concomitant]
     Dosage: 10 MG, UNK
  4. EFFEXOR XR [Concomitant]
     Dosage: UNK
     Dates: start: 20101102
  5. TUMS                               /00108001/ [Concomitant]
  6. OMEPRAZOLE [Concomitant]
     Dosage: 20 MG, UNK
     Dates: start: 20101119
  7. LORAZEPAM [Concomitant]
     Dosage: 0.5 MG, UNK
     Dates: start: 20101119
  8. SINGULAIR [Concomitant]
  9. ADVAIR [Concomitant]
     Dosage: UNK
     Dates: start: 20101102
  10. PNEUMOCOCCAL VACCINE [Concomitant]
     Dosage: UNK
     Dates: start: 20101102

REACTIONS (1)
  - LIPOMA [None]
